FAERS Safety Report 9026229 (Version 1)
Quarter: 2013Q1

REPORT INFORMATION
  Report Type: Spontaneous
  Country: US (occurrence: None)
  Receive Date: 20130108
  Receipt Date: 20130108
  Transmission Date: 20140127
  Serious: Yes (Other)
  Sender: FDA-Public Use
  Company Number: TPA2012A08334

PATIENT
  Age: 64 Year
  Sex: Male
  Weight: 115.67 kg

DRUGS (7)
  1. ACTOS (PIOGLITAZONE HYDROCHLORIDE) [Suspect]
     Indication: TYPE 2 DIABETES MELLITUS
     Dates: start: 200211, end: 200703
  2. DIABETA (GLIBENCLAMIDE) [Concomitant]
  3. METFORMIN (METFORMIN) [Concomitant]
  4. GLUCOPHAGE [Concomitant]
  5. JANUVIA (SITAGLIPTIN PHOSPHATE) [Concomitant]
  6. BYETTA [Concomitant]
  7. VICTOZA (LIRAGLUTIDE) [Concomitant]

REACTIONS (1)
  - Bladder cancer recurrent [None]
